FAERS Safety Report 8814530 (Version 9)
Quarter: 2013Q3

REPORT INFORMATION
  Report Type: Spontaneous
  Country: US (occurrence: US)
  Receive Date: 20120928
  Receipt Date: 20130817
  Transmission Date: 20140515
  Serious: Yes (Hospitalization, Other)
  Sender: FDA-Public Use
  Company Number: PHEH2005US014209

PATIENT
  Age: 60 Year
  Sex: Female
  Weight: 54.42 kg

DRUGS (51)
  1. AREDIA [Suspect]
     Indication: PLASMA CELL MYELOMA
     Dosage: 90 MG, QMO
     Route: 042
     Dates: start: 2002, end: 2005
  2. AREDIA [Suspect]
     Indication: MASTOCYTOSIS
  3. ZOMETA [Suspect]
     Route: 042
     Dates: start: 2002, end: 200511
  4. ADVAIR [Suspect]
  5. PREMARIN [Concomitant]
  6. ZYRTEC [Concomitant]
     Dosage: 10 MG, QD
  7. BENADRYL ^PFIZER WARNER-LAMBERT^ [Concomitant]
     Dates: start: 1991
  8. RANITIDINE [Concomitant]
     Dosage: 150 MG, UNK
  9. PERCOCET [Concomitant]
  10. REMERON [Concomitant]
  11. CHEMOTHERAPEUTICS NOS [Concomitant]
  12. GLEEVEC [Concomitant]
     Dosage: 500 MG, QD
     Route: 048
     Dates: start: 20040519
  13. SINGULAIR [Concomitant]
     Dosage: 10 MG, QD
  14. DIPROLENE [Concomitant]
     Route: 061
  15. ZANTAC [Concomitant]
  16. METHIMAZOLE [Concomitant]
  17. VANCOMYCIN [Concomitant]
  18. EVISTA [Concomitant]
  19. PREDNISONE [Concomitant]
  20. OXYCONTIN [Concomitant]
  21. OXYCODONE [Concomitant]
  22. TAPAZOLE [Concomitant]
  23. MORPHINE [Concomitant]
  24. VALIUM [Concomitant]
  25. CIPRO ^MILES^ [Concomitant]
  26. COUMADIN ^BOOTS^ [Concomitant]
  27. PENICILLIN ^GRUNENTHAL^ [Concomitant]
  28. ALBUTEROL [Concomitant]
  29. CLOTRIMAZOLE [Concomitant]
  30. METOPROLOL [Concomitant]
  31. PROAIR (FLUTICASONE PROPIONATE) [Concomitant]
  32. MYCELEX [Concomitant]
  33. AUGMENTIN                               /SCH/ [Concomitant]
  34. DIPROLENE CREAM [Concomitant]
  35. BRONCHODILATORS [Concomitant]
  36. TYLENOL [Concomitant]
     Dosage: 625 MG, UNK
     Route: 048
     Dates: start: 20090619
  37. ETOMIDATE [Concomitant]
     Dosage: 40 MG, UNK
     Route: 042
     Dates: start: 20090619
  38. FENTANYL CITRATE [Concomitant]
     Dosage: 100 UG, UNK
     Dates: start: 20090619
  39. GLYCOPYRROLATE [Concomitant]
     Dosage: 0.2 MG/ML, UNK
  40. HYDROCORTISONE SODIUM SUCCINATE [Concomitant]
     Dosage: 1350 MG, UNK
     Dates: start: 20090619
  41. LACTATED RINGER^S INJECTION [Concomitant]
     Route: 042
     Dates: start: 20090619
  42. LIDOCAINE [Concomitant]
     Dosage: 100 MG, UNK
     Route: 042
  43. METHYLPREDNISOLONE [Concomitant]
     Dosage: 150 MG, UNK
     Dates: start: 20090619
  44. MIDAZOLAM [Concomitant]
     Dosage: 2 MG, UNK
  45. NEOSTIGMINE METHYLSULFATE [Concomitant]
  46. TOBRAMYCIN [Concomitant]
     Dates: start: 20090619
  47. VECURONIUM BROMIDE [Concomitant]
     Dates: start: 20090619
  48. PRILOSEC [Concomitant]
     Dosage: 20 MG, QD
     Route: 048
  49. CALTRATE [Concomitant]
     Dosage: 600 MG, QD
     Route: 048
  50. VITAMIN D [Concomitant]
     Dosage: 50000 IU, QMO
     Route: 048
  51. ATARAX [Concomitant]

REACTIONS (112)
  - Infection [Unknown]
  - Respiratory distress [Unknown]
  - Osteonecrosis of jaw [Unknown]
  - Oral pain [Unknown]
  - Osteomyelitis [Unknown]
  - Oral disorder [Unknown]
  - Bone disorder [Not Recovered/Not Resolved]
  - Jaw disorder [Unknown]
  - Bone scan abnormal [Unknown]
  - Ulcer [Unknown]
  - Mass [Unknown]
  - Jaw fracture [Unknown]
  - Weight decreased [Unknown]
  - Oroantral fistula [Unknown]
  - Periodontal disease [Unknown]
  - Tooth disorder [Unknown]
  - Denture wearer [Unknown]
  - Swelling [Unknown]
  - Gingival erosion [Unknown]
  - Gingival swelling [Unknown]
  - Palatal oedema [Unknown]
  - Mouth ulceration [Unknown]
  - Swollen tongue [Unknown]
  - Palatal disorder [Unknown]
  - Astrocytoma [Unknown]
  - Lymphoma [Unknown]
  - Metastasis [Unknown]
  - Mastocytosis [Unknown]
  - Condition aggravated [Unknown]
  - Osteopenia [Unknown]
  - Osteoporosis [Unknown]
  - Osteoarthritis [Unknown]
  - Nasal septum deviation [Unknown]
  - Computerised tomogram abnormal [Unknown]
  - Scoliosis [Unknown]
  - Basedow^s disease [Unknown]
  - Exophthalmos [Unknown]
  - Goitre [Unknown]
  - Hyperthyroidism [Unknown]
  - Endocrine ophthalmopathy [Unknown]
  - Diplopia [Unknown]
  - Disorder of orbit [Unknown]
  - Compression fracture [Unknown]
  - Cardiac arrest [Unknown]
  - Asthma [Not Recovered/Not Resolved]
  - Cough [Unknown]
  - Pulmonary congestion [Unknown]
  - Wheezing [Unknown]
  - Dyspnoea [Unknown]
  - Escherichia infection [Unknown]
  - Breast mass [Unknown]
  - Spinal osteoarthritis [Unknown]
  - Aortic aneurysm [Unknown]
  - Hepatic cyst [Unknown]
  - Essential hypertension [Unknown]
  - Ischaemia [Unknown]
  - Tonsillar disorder [Unknown]
  - Oral candidiasis [Unknown]
  - Hypoxia [Unknown]
  - Hypothyroidism [Unknown]
  - Anxiety disorder [Unknown]
  - Polycythaemia [Unknown]
  - Leukocytosis [Unknown]
  - Respiratory failure [Unknown]
  - Rash erythematous [Unknown]
  - Rash vesicular [Unknown]
  - Herpes zoster [Unknown]
  - Cerebrovascular accident [Unknown]
  - Amnesia [Unknown]
  - Aphasia [Unknown]
  - Chronic obstructive pulmonary disease [Unknown]
  - Fibrocystic breast disease [Unknown]
  - Hypoaesthesia [Unknown]
  - Local swelling [Unknown]
  - Hyperaemia [Unknown]
  - Aortic calcification [Unknown]
  - Lymph node tuberculosis [Unknown]
  - Tachypnoea [Unknown]
  - Acute prerenal failure [Unknown]
  - Left ventricular hypertrophy [Unknown]
  - Diastolic dysfunction [Unknown]
  - Pericardial effusion [Unknown]
  - Sinus tachycardia [Unknown]
  - Pneumonia streptococcal [Unknown]
  - Lung hyperinflation [Unknown]
  - Tachycardia [Unknown]
  - Hyponatraemia [Recovering/Resolving]
  - Haemorrhage [Unknown]
  - Infarction [Unknown]
  - Bronchitis [Unknown]
  - Interstitial lung disease [Unknown]
  - Mydriasis [Unknown]
  - Cardiomegaly [Unknown]
  - Hypercapnia [Unknown]
  - Tricuspid valve incompetence [Unknown]
  - Left ventricular dysfunction [Unknown]
  - Mitral valve calcification [Unknown]
  - Gait disturbance [Unknown]
  - Muscle atrophy [Unknown]
  - Eczema [Unknown]
  - Osteopetrosis [Unknown]
  - Malignant mast cell neoplasm [Unknown]
  - Fatigue [Unknown]
  - Hepatic lesion [Unknown]
  - Hallucination [Unknown]
  - Insomnia [Unknown]
  - Hypokalaemia [Unknown]
  - Hypotension [Unknown]
  - Atelectasis [Unknown]
  - Lung infiltration [Unknown]
  - Bradycardia [Unknown]
  - Dizziness [Unknown]
